FAERS Safety Report 16530470 (Version 2)
Quarter: 2019Q3

REPORT INFORMATION
  Report Type: Spontaneous
  Country: PH (occurrence: PH)
  Receive Date: 20190704
  Receipt Date: 20190802
  Transmission Date: 20191004
  Serious: Yes (Death, Other)
  Sender: FDA-Public Use
  Company Number: PH-B.I. PHARMACEUTICALS,INC./RIDGEFIELD-2019-BI-028223

PATIENT
  Age: 58 Year
  Sex: Female

DRUGS (2)
  1. PRADAXA [Suspect]
     Active Substance: DABIGATRAN ETEXILATE MESYLATE
     Indication: ATRIAL FIBRILLATION
  2. PRADAXA [Suspect]
     Active Substance: DABIGATRAN ETEXILATE MESYLATE
     Indication: CEREBROVASCULAR ACCIDENT
     Route: 065

REACTIONS (7)
  - Cerebral haematoma [Fatal]
  - Balance disorder [Unknown]
  - Injury [Unknown]
  - Mouth haemorrhage [Recovered/Resolved]
  - Subdural haematoma [Fatal]
  - Brain injury [Unknown]
  - Fall [Unknown]

NARRATIVE: CASE EVENT DATE: 20190627
